FAERS Safety Report 8318980-0 (Version None)
Quarter: 2012Q2

REPORT INFORMATION
  Report Type: 
  Country: None (occurrence: None)
  Receive Date: 20120427
  Receipt Date: 20120419
  Transmission Date: 20120825
  Serious: Yes (Other)
  Sender: FDA-Public Use
  Company Number: CA-JNJFOC-20120409052

PATIENT
  Sex: Female
  Weight: 60 kg

DRUGS (5)
  1. REMICADE [Suspect]
     Indication: COLITIS ULCERATIVE
     Route: 042
     Dates: start: 20120419
  2. REMICADE [Suspect]
     Route: 042
     Dates: start: 20110701
  3. PREDNISONE TAB [Concomitant]
     Route: 065
  4. IMURAN [Concomitant]
     Route: 065
  5. CETIRIZINE HCL [Concomitant]
     Route: 065

REACTIONS (2)
  - PRESYNCOPE [None]
  - RASH GENERALISED [None]
